FAERS Safety Report 4993502-0 (Version None)
Quarter: 2006Q2

REPORT INFORMATION
  Report Type: 
  Country: None (occurrence: None)
  Receive Date: 20060504
  Receipt Date: 20060504
  Transmission Date: 20061013
  Serious: Yes (Disabling)
  Sender: FDA-Public Use
  Company Number: None

PATIENT
  Sex: Female
  Weight: 57 kg

DRUGS (6)
  1. AREDIA [Suspect]
     Indication: BREAST CANCER METASTATIC
     Dosage: 90 MG MONTHY IV DRIP
     Route: 041
     Dates: start: 20000101, end: 20020401
  2. AREDIA [Suspect]
     Indication: METASTASES TO BONE
     Dosage: 90 MG MONTHY IV DRIP
     Route: 041
     Dates: start: 20000101, end: 20020401
  3. AREDIA [Suspect]
     Indication: METASTASES TO LUNG
     Dosage: 90 MG MONTHY IV DRIP
     Route: 041
     Dates: start: 20000101, end: 20020401
  4. ZOMETA [Suspect]
     Indication: BREAST CANCER METASTATIC
     Dosage: 4 MG MONTHLY IV DRIP
     Route: 041
     Dates: start: 20020501, end: 20041101
  5. ZOMETA [Suspect]
     Indication: METASTASES TO BONE
     Dosage: 4 MG MONTHLY IV DRIP
     Route: 041
     Dates: start: 20020501, end: 20041101
  6. ZOMETA [Suspect]
     Indication: METASTASES TO LUNG
     Dosage: 4 MG MONTHLY IV DRIP
     Route: 041
     Dates: start: 20020501, end: 20041101

REACTIONS (1)
  - OSTEONECROSIS [None]
